FAERS Safety Report 24815733 (Version 1)
Quarter: 2025Q1

REPORT INFORMATION
  Report Type: Spontaneous
  Country: US (occurrence: US)
  Receive Date: 20250107
  Receipt Date: 20250107
  Transmission Date: 20250409
  Serious: No
  Sender: PFIZER
  Company Number: US-PFIZER INC-PV202500000370

PATIENT
  Age: 60 Year
  Sex: Female

DRUGS (1)
  1. NURTEC ODT [Suspect]
     Active Substance: RIMEGEPANT SULFATE
     Indication: Migraine prophylaxis
     Dosage: UNK, ALTERNATE DAY (1 SL EVERY OTHER DAY)
     Route: 048
     Dates: start: 202402

REACTIONS (2)
  - Dyspepsia [Unknown]
  - Urinary tract infection [Unknown]
